FAERS Safety Report 18147637 (Version 2)
Quarter: 2020Q3

REPORT INFORMATION
  Report Type: Report from Study
  Country: None (occurrence: US)
  Receive Date: 20200814
  Receipt Date: 20200915
  Transmission Date: 20201103
  Serious: Yes (Other)
  Sender: FDA-Public Use
  Company Number: US-ABBVIE-20K-163-3375142-00

PATIENT
  Sex: Female

DRUGS (3)
  1. HUMIRA [Suspect]
     Active Substance: ADALIMUMAB
     Route: 058
     Dates: start: 20200418, end: 202005
  2. HUMIRA [Suspect]
     Active Substance: ADALIMUMAB
     Indication: PSORIASIS
     Route: 058
     Dates: start: 20191017
  3. METHOTREXATE. [Concomitant]
     Active Substance: METHOTREXATE
     Indication: PRODUCT USED FOR UNKNOWN INDICATION

REACTIONS (13)
  - Rheumatoid arthritis [Not Recovered/Not Resolved]
  - Conjunctivitis [Recovering/Resolving]
  - Rash [Recovering/Resolving]
  - Feeling abnormal [Not Recovered/Not Resolved]
  - Decreased activity [Unknown]
  - Fatigue [Not Recovered/Not Resolved]
  - Pruritus [Recovering/Resolving]
  - Malaise [Recovered/Resolved]
  - Pneumonia [Recovering/Resolving]
  - Dysphonia [Not Recovered/Not Resolved]
  - Nasopharyngitis [Recovered/Resolved]
  - Pyrexia [Unknown]
  - Pneumothorax [Recovering/Resolving]

NARRATIVE: CASE EVENT DATE: 2020
